FAERS Safety Report 9490898 (Version 3)
Quarter: 2013Q3

REPORT INFORMATION
  Report Type: Spontaneous
  Country: US (occurrence: US)
  Receive Date: 20130830
  Receipt Date: 20130916
  Transmission Date: 20140515
  Serious: No
  Sender: FDA-Public Use
  Company Number: US-PFIZER INC-2013247233

PATIENT
  Age: 56 Year
  Sex: Female
  Weight: 106.58 kg

DRUGS (16)
  1. LYRICA [Suspect]
     Indication: FIBROMYALGIA
     Dosage: 100 MG, 2X/DAY
     Route: 048
     Dates: start: 2013
  2. LYRICA [Suspect]
     Indication: DIABETIC NEUROPATHY
     Dosage: 150 MG, 2X/DAY
     Route: 048
     Dates: start: 201308
  3. LYRICA [Suspect]
     Dosage: UNK
     Route: 048
  4. LYRICA [Suspect]
     Dosage: 150 MG, 2X/DAY
     Route: 048
  5. LYRICA [Suspect]
     Dosage: UNK
  6. CYMBALTA [Suspect]
     Indication: FIBROMYALGIA
     Dosage: UNK
  7. IBANDRONATE SODIUM [Concomitant]
     Indication: BONE DISORDER
     Dosage: UNK, MONTHLY
  8. MORPHINE [Concomitant]
     Dosage: UNK
  9. CLONAZEPAM [Concomitant]
     Dosage: UNK
  10. LISINOPRIL [Concomitant]
     Dosage: UNK
  11. WARFARIN [Concomitant]
     Dosage: UNK
  12. ONGLYZA [Concomitant]
     Dosage: UNK
  13. GLIPIZIDE [Concomitant]
     Dosage: UNK
  14. PROTONIX [Concomitant]
     Dosage: UNK
  15. TIZANIDINE [Concomitant]
     Dosage: UNK
  16. LIPITOR [Concomitant]
     Dosage: UNK

REACTIONS (20)
  - Pain [Unknown]
  - Blister [Recovering/Resolving]
  - Skin discolouration [Recovering/Resolving]
  - Hypokinesia [Unknown]
  - Sensation of blood flow [Unknown]
  - Anger [Unknown]
  - Hostility [Unknown]
  - Chest discomfort [Unknown]
  - Drug ineffective [Unknown]
  - Nervous system disorder [Unknown]
  - Limb discomfort [Unknown]
  - Muscular weakness [Unknown]
  - Grip strength decreased [Unknown]
  - Activities of daily living impaired [Unknown]
  - Dyskinesia [Unknown]
  - Paraesthesia [Unknown]
  - Local swelling [Unknown]
  - Weight increased [Unknown]
  - Furuncle [Unknown]
  - Rash pruritic [Unknown]
